FAERS Safety Report 4446101-3 (Version None)
Quarter: 2004Q3

REPORT INFORMATION
  Report Type: 
  Country: None (occurrence: None)
  Receive Date: 20040907
  Receipt Date: 20040830
  Transmission Date: 20050211
  Serious: Yes (Other)
  Sender: FDA-Public Use
  Company Number: HQWYE504510DEC03

PATIENT
  Age: 32 Year
  Sex: Female
  Weight: 89.67 kg

DRUGS (5)
  1. EFFEXOR XR [Suspect]
     Indication: DEPRESSION
     Dosage: SEE IMAGE
     Route: 048
     Dates: start: 20020801, end: 20040101
  2. EFFEXOR XR [Suspect]
     Indication: EATING DISORDER
     Dosage: SEE IMAGE
     Route: 048
     Dates: start: 20020801, end: 20040101
  3. EFFEXOR XR [Suspect]
     Indication: DEPRESSION
     Dosage: SEE IMAGE
     Route: 048
     Dates: start: 20040101, end: 20040601
  4. EFFEXOR XR [Suspect]
     Indication: EATING DISORDER
     Dosage: SEE IMAGE
     Route: 048
     Dates: start: 20040101, end: 20040601
  5. VITAMINS (VITAMINS) [Concomitant]

REACTIONS (3)
  - ABORTION MISSED [None]
  - ABORTION SPONTANEOUS [None]
  - DRUG EXPOSURE DURING PREGNANCY [None]
